FAERS Safety Report 9566688 (Version 1)
Quarter: 2013Q3

REPORT INFORMATION
  Report Type: Spontaneous
  Country: US (occurrence: US)
  Receive Date: 20130930
  Receipt Date: 20130930
  Transmission Date: 20140515
  Serious: No
  Sender: FDA-Public Use
  Company Number: US-AMGEN-USASP2012062286

PATIENT
  Age: 57 Year
  Sex: Female
  Weight: 120.91 kg

DRUGS (14)
  1. ENBREL [Suspect]
     Indication: PRODUCT USED FOR UNKNOWN INDICATION
     Dosage: 50 MG/ML, UNK
  2. FOLIC ACID [Concomitant]
     Dosage: UNK
  3. LOSARTAN + HIDROCLOROTIAZIDA [Concomitant]
     Dosage: 100-12.5
  4. BYSTOLIC [Concomitant]
     Dosage: 10 MG, UNK
  5. VITAMIN D                          /00107901/ [Concomitant]
     Dosage: 100 UNIT, UNK
  6. ZEGERID                            /00661201/ [Concomitant]
     Dosage: 20-1100
  7. ROPINIROLE [Concomitant]
     Dosage: 0.25 MG, UNK
  8. LUMIGAN [Concomitant]
     Dosage: 0.01 %, UNK
  9. COMBIGAN [Concomitant]
     Dosage: 0.2/0.5%
  10. ADVIL                              /00044201/ [Concomitant]
     Dosage: 200 MG, UNK
  11. METFORMIN [Concomitant]
     Dosage: 500 MG, UNK
  12. METHOTREXATE [Concomitant]
     Dosage: 2.5 MG, UNK
  13. AMLODIPINE [Concomitant]
     Dosage: 5 MG, UNK
  14. HUMIRA [Concomitant]
     Dosage: 40MG/0.8

REACTIONS (7)
  - Injection site scab [Unknown]
  - Injection site reaction [Unknown]
  - Injection site swelling [Unknown]
  - Injection site erythema [Unknown]
  - Injection site pruritus [Unknown]
  - Inflammation [Unknown]
  - Diabetes mellitus [Unknown]
